FAERS Safety Report 8088261-1 (Version None)
Quarter: 2012Q1

REPORT INFORMATION
  Report Type: 
  Country: None (occurrence: None)
  Receive Date: 20120128
  Receipt Date: 20110412
  Transmission Date: 20120608
  Serious: No
  Sender: FDA-Public Use
  Company Number: US-ABBOTT-11P-163-0718399-00

PATIENT
  Age: 65 Year
  Sex: Female

DRUGS (11)
  1. METHOTREXATE [Concomitant]
     Indication: RHEUMATOID ARTHRITIS
     Dosage: FIVE TABLETS WEEKLY
  2. HUMIRA [Suspect]
     Indication: RHEUMATOID ARTHRITIS
     Dates: end: 20100301
  3. HYDROCODONE BITARTRATE [Concomitant]
     Indication: ARTHRALGIA
     Dosage: 10/325MG X1 EVERY 4-6 HOURS AS NEEDED
  4. FOLIC ACID [Concomitant]
     Indication: PRODUCT USED FOR UNKNOWN INDICATION
     Dosage: X1 DAILY IN CONJUNCTION WITH THE METHOTREXATE
  5. HUMIRA [Suspect]
     Dates: start: 20110412
  6. FERROUS SULFATE TAB [Concomitant]
     Indication: ANAEMIA
  7. ARTHROTEC [Concomitant]
     Indication: RHEUMATOID ARTHRITIS
     Dosage: X1 TAB TWICE DAILY AS NEEDED
  8. HUMIRA [Suspect]
     Dates: start: 20110322, end: 20110404
  9. VITAMIN D [Concomitant]
     Indication: VITAMIN D DEFICIENCY
     Dosage: ONE TAB WEEKLY
  10. FUROSEMIDE [Concomitant]
     Indication: OEDEMA
  11. PREDNISONE TAB [Concomitant]
     Indication: RHEUMATOID ARTHRITIS
     Dosage: 1MG-TWO TABS AS NEEDED

REACTIONS (6)
  - RHEUMATOID ARTHRITIS [None]
  - VITAMIN D DEFICIENCY [None]
  - INJECTION SITE IRRITATION [None]
  - PEPTIC ULCER REACTIVATED [None]
  - DRUG DOSE OMISSION [None]
  - DEVICE MALFUNCTION [None]
